FAERS Safety Report 20749784 (Version 1)
Quarter: 2022Q2

REPORT INFORMATION
  Report Type: Spontaneous
  Country: US (occurrence: US)
  Receive Date: 20220426
  Receipt Date: 20220426
  Transmission Date: 20220721
  Serious: Yes (Other)
  Sender: FDA-Public Use
  Company Number: US-GLAXOSMITHKLINE-US2022AMR068004

PATIENT
  Age: 42 Year
  Sex: Female

DRUGS (2)
  1. LAMOTRIGINE [Suspect]
     Active Substance: LAMOTRIGINE
     Indication: Product used for unknown indication
     Dosage: UNK
  2. UBRELVY [Suspect]
     Active Substance: UBROGEPANT
     Indication: Migraine
     Dosage: 100 MG, SINGLE
     Dates: start: 20220413, end: 20220413

REACTIONS (8)
  - Suicide attempt [Recovered/Resolved]
  - Suicidal ideation [Recovered/Resolved]
  - Loss of consciousness [Recovered/Resolved]
  - Psychotic disorder [Recovered/Resolved]
  - Abnormal dreams [Recovered/Resolved]
  - Anger [Recovered/Resolved]
  - Mental disorder [Recovered/Resolved]
  - Drug ineffective [Unknown]

NARRATIVE: CASE EVENT DATE: 20220413
